FAERS Safety Report 22784607 (Version 5)
Quarter: 2024Q1

REPORT INFORMATION
  Report Type: Report from Study
  Country: US (occurrence: US)
  Receive Date: 20230804
  Receipt Date: 20240102
  Transmission Date: 20240409
  Serious: Yes (Hospitalization, Other)
  Sender: FDA-Public Use
  Company Number: US-ACADIA PHARMACEUTICALS INC.-ACA-2023-TRF-002888

PATIENT
  Age: 10 Year
  Sex: Female

DRUGS (7)
  1. DAYBUE [Suspect]
     Active Substance: TROFINETIDE
     Indication: Rett syndrome
     Dosage: 30 MILLILITER, BID
     Route: 048
     Dates: end: 20231005
  2. DAYBUE [Suspect]
     Active Substance: TROFINETIDE
     Dosage: 30 MILLILITER, BID
     Route: 048
     Dates: start: 20231011, end: 20231108
  3. DAYBUE [Suspect]
     Active Substance: TROFINETIDE
     Dosage: 30 MILLILITER, BID
     Route: 048
     Dates: start: 20231113
  4. TRILEPTAL [Concomitant]
     Active Substance: OXCARBAZEPINE
  5. DEPAKOTE ER [Concomitant]
     Active Substance: DIVALPROEX SODIUM
  6. VALTOCO [Concomitant]
     Active Substance: DIAZEPAM
  7. MULTIVITAMINS + IRON [Concomitant]

REACTIONS (9)
  - Seizure [Recovered/Resolved]
  - Influenza [Unknown]
  - Product dose omission issue [Unknown]
  - Musculoskeletal stiffness [Unknown]
  - Product dose omission issue [Recovered/Resolved]
  - Diarrhoea [Not Recovered/Not Resolved]
  - Diarrhoea [Not Recovered/Not Resolved]
  - Diarrhoea [Not Recovered/Not Resolved]
  - Nasopharyngitis [Not Recovered/Not Resolved]

NARRATIVE: CASE EVENT DATE: 20231005
